FAERS Safety Report 21775803 (Version 1)
Quarter: 2022Q4

REPORT INFORMATION
  Report Type: Other
  Country: GB (occurrence: GB)
  Receive Date: 20221226
  Receipt Date: 20221226
  Transmission Date: 20230113
  Serious: Yes (Other)
  Sender: FDA-Public Use
  Company Number: GB-MHRA-MED-202212121122534930-NDYTJ

PATIENT

DRUGS (4)
  1. ALLOPURINOL [Interacting]
     Active Substance: ALLOPURINOL
     Indication: Gout
     Dosage: IN THE MORNING; ;INITIAL 300MG DOSE REDUCED TO 100MG AFTER 5 WEEKS OF CONTINUOUS DIARRHOEA
     Route: 065
     Dates: start: 20130101
  2. ALLOPURINOL [Interacting]
     Active Substance: ALLOPURINOL
     Dosage: IN THE MORNING; ;INITIAL 300MG DOSE REDUCED TO 100MG AFTER 5 WEEKS OF CONTINUOUS DIARRHOEA
     Route: 065
     Dates: end: 20221130
  3. ELASOMERAN\IMELASOMERAN [Interacting]
     Active Substance: ELASOMERAN\IMELASOMERAN
     Indication: COVID-19 immunisation
     Dosage: DOSE 4
     Route: 065
     Dates: start: 20220922, end: 20220922
  4. PFIZER-BIONTECH COVID-19 VACCINE [Suspect]
     Active Substance: TOZINAMERAN
     Indication: COVID-19 immunisation
     Dosage: UNK
     Route: 065

REACTIONS (16)
  - Fatigue [Recovered/Resolved]
  - Diarrhoea [Recovered/Resolved]
  - Migraine with aura [Unknown]
  - Hypoaesthesia [Recovering/Resolving]
  - Breast pain [Recovering/Resolving]
  - Gynaecomastia [Unknown]
  - Pain in extremity [Unknown]
  - Photophobia [Recovered/Resolved]
  - Paraesthesia [Recovering/Resolving]
  - Breast swelling [Not Recovered/Not Resolved]
  - Sensory disturbance [Not Recovered/Not Resolved]
  - Lethargy [Recovered/Resolved]
  - Malaise [Recovered/Resolved]
  - Diplopia [Recovering/Resolving]
  - Skin exfoliation [Unknown]
  - Drug interaction [Unknown]

NARRATIVE: CASE EVENT DATE: 20130101
